FAERS Safety Report 8386256-1 (Version None)
Quarter: 2012Q2

REPORT INFORMATION
  Report Type: 
  Country: None (occurrence: None)
  Receive Date: 20120525
  Receipt Date: 20120521
  Transmission Date: 20120825
  Serious: Yes (Other)
  Sender: FDA-Public Use
  Company Number: JP-PFIZER INC-2012076317

PATIENT
  Age: 69 Year
  Sex: Female
  Weight: 35 kg

DRUGS (14)
  1. CELEBREX [Suspect]
     Indication: RHEUMATOID ARTHRITIS
     Dosage: 100 MG, 2X/DAY
     Route: 045
     Dates: start: 20111214, end: 20120221
  2. FAMOTIDINE [Concomitant]
     Indication: GASTRITIS
     Dosage: 20 MG, 2X/DAY
     Route: 045
     Dates: start: 20110725
  3. ASPARA K [Concomitant]
     Indication: HYPOKALAEMIA
     Dosage: 300 MG, 2X/DAY
     Route: 045
     Dates: start: 20110909, end: 20120126
  4. MUCODYNE [Concomitant]
     Dosage: 1.5 G/DAY
     Route: 048
  5. HOKUNALIN [Concomitant]
     Dosage: UNK
     Route: 062
  6. ZONISAMIDE [Concomitant]
     Indication: EPILEPSY
     Dosage: 75 MG, 2X/DAY
     Route: 045
     Dates: start: 20100625
  7. ASPARA K [Concomitant]
     Dosage: 150 MG, 2X/DAY
     Route: 045
     Dates: start: 20120127
  8. LYRICA [Suspect]
     Indication: NEURALGIA
     Dosage: 75 MG, 1X/DAY
     Route: 045
     Dates: start: 20111226, end: 20120112
  9. CELEBREX [Suspect]
     Indication: PAIN IN EXTREMITY
  10. LYRICA [Suspect]
     Indication: PAIN IN EXTREMITY
     Dosage: 75 MG, 2X/DAY
     Route: 045
     Dates: start: 20120112, end: 20120213
  11. RIKKUNSHITO [Concomitant]
     Dosage: 7.5 G/DAY
     Route: 048
  12. RISUMIC [Concomitant]
     Dosage: 20 MG/DAY
     Route: 048
  13. ZOLPIDEM [Suspect]
     Indication: INSOMNIA
     Dosage: 5 MG, 1X/DAY
     Route: 045
     Dates: start: 20111212, end: 20120220
  14. SIGMART [Concomitant]
     Dosage: 15 MG/DAY
     Route: 048

REACTIONS (2)
  - DRUG ERUPTION [None]
  - URINARY TRACT INFECTION [None]
